FAERS Safety Report 13970774 (Version 8)
Quarter: 2020Q3

REPORT INFORMATION
  Report Type: Spontaneous
  Country: BE (occurrence: BE)
  Receive Date: 20170914
  Receipt Date: 20200702
  Transmission Date: 20201102
  Serious: Yes (Other)
  Sender: FDA-Public Use
  Company Number: BE-SA-2017SA166875

PATIENT

DRUGS (1)
  1. LEMTRADA [Suspect]
     Active Substance: ALEMTUZUMAB
     Dosage: UNK UNK,UNK
     Route: 064

REACTIONS (3)
  - Foetal exposure timing unspecified [Unknown]
  - Anomaly of external ear congenital [Unknown]
  - Deafness unilateral [Unknown]
